FAERS Safety Report 5341543-6 (Version None)
Quarter: 2007Q2

REPORT INFORMATION
  Report Type: 
  Country: None (occurrence: None)
  Receive Date: 20070529
  Receipt Date: 20070529
  Transmission Date: 20071010
  Serious: No
  Sender: FDA-Public Use
  Company Number: None

PATIENT
  Age: 46 Year
  Sex: Female
  Weight: 58.0604 kg

DRUGS (6)
  1. ROZEREM [Suspect]
     Indication: INSOMNIA
     Dosage: 30  1
     Dates: start: 20070222, end: 20070225
  2. ROZEREM [Suspect]
     Indication: MENOPAUSE
     Dosage: 30  1
     Dates: start: 20070222, end: 20070225
  3. ROZEREM [Suspect]
     Indication: INSOMNIA
     Dosage: 30  1
     Dates: start: 20070216
  4. ROZEREM [Suspect]
     Indication: MENOPAUSE
     Dosage: 30  1
     Dates: start: 20070216
  5. ROZEREM [Suspect]
     Indication: INSOMNIA
     Dosage: 30  1
     Dates: start: 20070218
  6. ROZEREM [Suspect]
     Indication: MENOPAUSE
     Dosage: 30  1
     Dates: start: 20070218

REACTIONS (6)
  - CHEST PAIN [None]
  - DRUG INEFFECTIVE [None]
  - DYSPNOEA [None]
  - HEADACHE [None]
  - HEART RATE IRREGULAR [None]
  - HYPERHIDROSIS [None]
